FAERS Safety Report 5335308-9 (Version None)
Quarter: 2007Q2

REPORT INFORMATION
  Report Type: 
  Country: None (occurrence: None)
  Receive Date: 20070525
  Receipt Date: 20070516
  Transmission Date: 20071010
  Serious: Yes (Other)
  Sender: FDA-Public Use
  Company Number: PL-PFIZER INC-2007036796

PATIENT
  Sex: Female
  Weight: 70 kg

DRUGS (2)
  1. XALATAN [Suspect]
     Dates: start: 20070303, end: 20070404
  2. ANTIHYPERTENSIVES [Concomitant]

REACTIONS (4)
  - CONJUNCTIVAL HYPERAEMIA [None]
  - CONJUNCTIVAL OEDEMA [None]
  - EYELID OEDEMA [None]
  - HYPERSENSITIVITY [None]
